FAERS Safety Report 21740196 (Version 1)
Quarter: 2022Q4

REPORT INFORMATION
  Report Type: Spontaneous
  Country: US (occurrence: None)
  Receive Date: 20221215
  Receipt Date: 20221215
  Transmission Date: 20230112
  Serious: No
  Sender: FDA-Public Use
  Company Number: None

PATIENT
  Age: 41 Year
  Sex: Male
  Weight: 114.31 kg

DRUGS (1)
  1. LISINOPRIL [Suspect]
     Active Substance: LISINOPRIL
     Indication: Hypertension
     Dosage: 1 TAB EVERY DAY PO?
     Route: 048
     Dates: start: 20220317, end: 20220804

REACTIONS (8)
  - Tonsillar hypertrophy [None]
  - Respiratory disorder [None]
  - Speech disorder [None]
  - Odynophagia [None]
  - Angioedema [None]
  - Viral infection [None]
  - Pharyngitis [None]
  - Palatal oedema [None]

NARRATIVE: CASE EVENT DATE: 20220804
